FAERS Safety Report 20947586 (Version 1)
Quarter: 2022Q2

REPORT INFORMATION
  Report Type: Other
  Country: US (occurrence: None)
  Receive Date: 20220611
  Receipt Date: 20220611
  Transmission Date: 20220721
  Serious: Yes (Other)
  Sender: FDA-Public Use
  Company Number: US-ROCHE-2856285

PATIENT
  Sex: Male
  Weight: 109.3 kg

DRUGS (7)
  1. ACTEMRA [Suspect]
     Active Substance: TOCILIZUMAB
     Indication: Giant cell arteritis
     Dosage: 162 MG/0.9 ML INJECT UNDER THE SKIN ONCE A WEEK ?AS EARLY AS /MAY/2019
     Route: 058
  2. ACTEMRA [Suspect]
     Active Substance: TOCILIZUMAB
  3. PREDNISONE [Concomitant]
     Active Substance: PREDNISONE
  4. ACETAMINOPHEN\HYDROCODONE [Concomitant]
     Active Substance: ACETAMINOPHEN\HYDROCODONE
  5. NAPROXEN [Concomitant]
     Active Substance: NAPROXEN
     Route: 048
  6. PENICILLIN V [Concomitant]
     Active Substance: PENICILLIN V
  7. CRESTOR [Concomitant]
     Active Substance: ROSUVASTATIN CALCIUM

REACTIONS (9)
  - Angioedema [Unknown]
  - Biopsy artery [Unknown]
  - Weight increased [Unknown]
  - Sleep disorder [Unknown]
  - Hyperlipidaemia [Unknown]
  - Dry skin [Unknown]
  - Tooth infection [Unknown]
  - Pain [Unknown]
  - Headache [Unknown]
